FAERS Safety Report 5527505-4 (Version None)
Quarter: 2007Q4

REPORT INFORMATION
  Report Type: 
  Country: None (occurrence: None)
  Receive Date: 20071123
  Receipt Date: 20071112
  Transmission Date: 20080405
  Serious: Yes (Other)
  Sender: FDA-Public Use
  Company Number: 2007S1000278

PATIENT
  Age: 77 Year
  Sex: Male
  Weight: 73.4827 kg

DRUGS (3)
  1. OLUX-E FOAM 0.05% (0.05 PCT) [Suspect]
     Indication: PSORIASIS
     Dosage: TOP
     Route: 061
     Dates: start: 20071103, end: 20071111
  2. COREG [Concomitant]
  3. VITAMIN B NOS [Concomitant]

REACTIONS (1)
  - BLOOD PRESSURE INCREASED [None]
